FAERS Safety Report 16703163 (Version 2)
Quarter: 2019Q3

REPORT INFORMATION
  Report Type: Report from Study
  Country: None (occurrence: CA)
  Receive Date: 20190814
  Receipt Date: 20190830
  Transmission Date: 20191004
  Serious: Yes (Death, Other)
  Sender: FDA-Public Use
  Company Number: CA-ABBVIE-19K-028-2888778-00

PATIENT
  Age: 72 Year
  Sex: Female

DRUGS (1)
  1. HUMIRA [Suspect]
     Active Substance: ADALIMUMAB
     Indication: CROHN^S DISEASE
     Route: 058
     Dates: start: 20161124

REACTIONS (3)
  - Metastatic neoplasm [Fatal]
  - Rectal cancer [Fatal]
  - Intestinal obstruction [Fatal]

NARRATIVE: CASE EVENT DATE: 201809
